FAERS Safety Report 22393298 (Version 1)
Quarter: 2023Q2

REPORT INFORMATION
  Report Type: Spontaneous
  Country: US (occurrence: US)
  Receive Date: 20230601
  Receipt Date: 20230601
  Transmission Date: 20230722
  Serious: Yes (Hospitalization, Other)
  Sender: FDA-Public Use
  Company Number: US-MEITHEAL-2023MPLIT00069

PATIENT
  Age: 33 Year
  Sex: Female

DRUGS (3)
  1. BLEOMYCIN [Suspect]
     Active Substance: BLEOMYCIN SULFATE
     Indication: Ovarian germ cell tumour mixed
     Route: 065
  2. ETOPOSIDE [Suspect]
     Active Substance: ETOPOSIDE
     Indication: Ovarian germ cell tumour mixed
     Route: 065
  3. CISPLATIN [Suspect]
     Active Substance: CISPLATIN
     Indication: Ovarian germ cell tumour mixed
     Route: 065

REACTIONS (2)
  - Growing teratoma syndrome [Recovered/Resolved]
  - Pulmonary fibrosis [Recovered/Resolved]
